FAERS Safety Report 8486541 (Version 3)
Quarter: 2013Q2

REPORT INFORMATION
  Report Type: Report from Study
  Country: MX (occurrence: MX)
  Receive Date: 20120402
  Receipt Date: 20130419
  Transmission Date: 20140414
  Serious: Yes (Death, Hospitalization, Other)
  Sender: FDA-Public Use
  Company Number: PHHY2012MX025774

PATIENT
  Age: 92 Year
  Sex: Male

DRUGS (2)
  1. CO-DIOVAN [Suspect]
     Indication: HYPERTENSION
     Dosage: 1 DF (160 MG VALS AND 12.5 MG HYDR) DAILY
     Dates: start: 200803, end: 20120315
  2. PLAVIX [Concomitant]
     Dosage: 1 DF, DAILY
     Dates: start: 200803

REACTIONS (9)
  - Multi-organ failure [Fatal]
  - Myocardial infarction [Fatal]
  - Gastrointestinal disorder [Not Recovered/Not Resolved]
  - Gastrointestinal haemorrhage [Unknown]
  - Inguinal hernia [Unknown]
  - Diverticulitis [Unknown]
  - Pulmonary oedema [Unknown]
  - Renal disorder [Unknown]
  - Blood pressure decreased [Unknown]
